FAERS Safety Report 10563679 (Version 1)
Quarter: 2014Q4

REPORT INFORMATION
  Report Type: Spontaneous
  Country: RO (occurrence: RO)
  Receive Date: 20141104
  Receipt Date: 20141104
  Transmission Date: 20150529
  Serious: Yes (Other)
  Sender: FDA-Public Use
  Company Number: RO-GLAXOSMITHKLINE-RO2014GSK016328

PATIENT
  Age: 32 Year
  Sex: Male

DRUGS (3)
  1. DARUNAVIR PLUS RITONAVIR [Suspect]
     Active Substance: DARUNAVIR\RITONAVIR
     Indication: HIV INFECTION
     Dosage: UNK, BID
  2. PENTACARINAT [Concomitant]
     Active Substance: PENTAMIDINE ISETHIONATE
     Indication: ANTIFUNGAL PROPHYLAXIS
  3. ABACAVIR SULFATE + LAMIVUDINE [Suspect]
     Active Substance: ABACAVIR SULFATE\LAMIVUDINE
     Indication: HIV INFECTION
     Dosage: UNK, BID

REACTIONS (8)
  - Nuclear magnetic resonance imaging abnormal [Unknown]
  - Immune reconstitution inflammatory syndrome [Recovering/Resolving]
  - Pyrexia [Recovering/Resolving]
  - Polyomavirus test positive [Unknown]
  - Dysphagia [Unknown]
  - Progressive multifocal leukoencephalopathy [Recovering/Resolving]
  - VIIth nerve paralysis [Recovering/Resolving]
  - Nervous system disorder [Recovering/Resolving]
